FAERS Safety Report 7705924-5 (Version None)
Quarter: 2011Q3

REPORT INFORMATION
  Report Type: 
  Country: None (occurrence: None)
  Receive Date: 20110824
  Receipt Date: 20110822
  Transmission Date: 20111222
  Serious: Yes (Other)
  Sender: FDA-Public Use
  Company Number: JP-PFIZER INC-2011193970

PATIENT
  Age: 80 Year
  Sex: Male

DRUGS (14)
  1. GLIMICRON [Concomitant]
     Dosage: 40 MG DAILY
     Route: 048
  2. ASPIRIN [Concomitant]
     Dosage: 100 MG DAILY
     Route: 048
  3. LAC B [Concomitant]
     Dosage: 3 G DAILY
     Route: 048
  4. GLYSENNID [Concomitant]
     Dosage: 24 MG DAILY
     Route: 048
  5. MAGNESIUM OXIDE [Concomitant]
     Dosage: 3 G DAILY
     Route: 048
  6. LOSARTAN POTASSIUM [Concomitant]
     Dosage: 25 MG DAILY
     Route: 048
  7. MUCOSTA [Concomitant]
     Dosage: 300 MG DAILY
     Route: 048
  8. VILDAGLIPTIN [Concomitant]
     Dosage: 100 MG DAILY
     Route: 048
  9. LANSOPRAZOLE [Concomitant]
     Dosage: 15 MG DAILY
     Route: 048
  10. LYRICA [Suspect]
     Indication: NEURALGIA
     Dosage: 50 MG DAILY
     Route: 048
     Dates: start: 20110520, end: 20110602
  11. PANTOSIN [Concomitant]
     Dosage: 3 G DAILY
     Route: 048
  12. PRIMPERAN TAB [Concomitant]
     Dosage: 15 MG DAILY
     Route: 048
  13. LYRICA [Suspect]
     Dosage: 100 MG DAILY
     Route: 048
     Dates: start: 20110603, end: 20110704
  14. GASMOTIN [Concomitant]
     Dosage: 15 MG DAILY
     Route: 048

REACTIONS (2)
  - BLOOD GLUCOSE INCREASED [None]
  - GLYCOSYLATED HAEMOGLOBIN INCREASED [None]
